FAERS Safety Report 4752343-X (Version None)
Quarter: 2005Q3

REPORT INFORMATION
  Report Type: 
  Country: None (occurrence: None)
  Receive Date: 20050825
  Receipt Date: 20050818
  Transmission Date: 20060218
  Serious: Yes (Other)
  Sender: FDA-Public Use
  Company Number: RU-GLAXOSMITHKLINE-B0391462A

PATIENT
  Age: 39 Year
  Sex: Male
  Weight: 100 kg

DRUGS (2)
  1. PAXIL [Suspect]
     Dosage: 20MG PER DAY
     Route: 048
     Dates: start: 20040905, end: 20041107
  2. XEFOCAM [Concomitant]
     Indication: PAIN
     Dosage: 16MG PER DAY
     Dates: start: 20040905, end: 20041107

REACTIONS (1)
  - THERAPEUTIC RESPONSE UNEXPECTED [None]
